FAERS Safety Report 19457894 (Version 2)
Quarter: 2021Q3

REPORT INFORMATION
  Report Type: Spontaneous
  Country: US (occurrence: US)
  Receive Date: 20210624
  Receipt Date: 20210903
  Transmission Date: 20211014
  Serious: No
  Sender: FDA-Public Use
  Company Number: US-DECIPHERA PHARMACEUTICALS LLC-2021US000356

PATIENT
  Age: 64 Year
  Sex: Male

DRUGS (1)
  1. QINLOCK [Suspect]
     Active Substance: RIPRETINIB
     Indication: GASTROINTESTINAL STROMAL TUMOUR
     Dosage: 150 MILLIGRAM, BID
     Route: 048
     Dates: start: 20200706

REACTIONS (3)
  - Extra dose administered [Unknown]
  - Product dose omission issue [Unknown]
  - Energy increased [Unknown]

NARRATIVE: CASE EVENT DATE: 20200706
